FAERS Safety Report 11779895 (Version 1)
Quarter: 2015Q4

REPORT INFORMATION
  Report Type: Spontaneous
  Country: BR (occurrence: BR)
  Receive Date: 20151125
  Receipt Date: 20151125
  Transmission Date: 20160304
  Serious: Yes (Other)
  Sender: FDA-Public Use
  Company Number: BR-ALLERGAN-1524523US

PATIENT
  Sex: Male

DRUGS (6)
  1. LUMIGAN [Suspect]
     Active Substance: BIMATOPROST
     Indication: PRODUCT USED FOR UNKNOWN INDICATION
     Route: 047
  2. XALATAN [Concomitant]
     Active Substance: LATANOPROST
     Indication: PRODUCT USED FOR UNKNOWN INDICATION
     Dosage: 2 GTT, QD
     Route: 047
     Dates: start: 20151023, end: 20151026
  3. FRONTAL [Concomitant]
     Active Substance: ALPRAZOLAM
     Indication: INSOMNIA
  4. FRONTAL [Concomitant]
     Active Substance: ALPRAZOLAM
     Indication: DEPRESSION
     Dosage: 2 MG, UNK
  5. FRONTAL [Concomitant]
     Active Substance: ALPRAZOLAM
     Indication: OBSESSIVE-COMPULSIVE DISORDER
     Dosage: 2 MG, UNK
  6. TRAMAL [Concomitant]
     Active Substance: TRAMADOL
     Indication: PRODUCT USED FOR UNKNOWN INDICATION
     Dosage: UNK

REACTIONS (2)
  - Ocular vascular disorder [Unknown]
  - Erythema [Recovering/Resolving]

NARRATIVE: CASE EVENT DATE: 20151026
